FAERS Safety Report 5309053-X (Version None)
Quarter: 2007Q2

REPORT INFORMATION
  Report Type: 
  Country: None (occurrence: None)
  Receive Date: 20070420
  Receipt Date: 20070416
  Transmission Date: 20071010
  Serious: Yes (Hospitalization)
  Sender: FDA-Public Use
  Company Number: 2007-01893

PATIENT
  Age: 73 Year
  Sex: Male

DRUGS (3)
  1. TRELSTAR DEPOT [Suspect]
     Indication: PROSTATE CANCER
     Dosage: 3 MG/MONTH (1 IN 1 MONTH), INTRAMUSCULAR
     Route: 030
     Dates: start: 20060101, end: 20061001
  2. ASPEGIC 1000 [Concomitant]
  3. RENITEC [Concomitant]

REACTIONS (1)
  - HAEMATURIA [None]
